FAERS Safety Report 17745969 (Version 1)
Quarter: 2020Q2

REPORT INFORMATION
  Report Type: Spontaneous
  Country: US (occurrence: US)
  Receive Date: 20200505
  Receipt Date: 20200505
  Transmission Date: 20200714
  Serious: No
  Sender: FDA-Public Use
  Company Number: US-SA-2020SA114866

PATIENT
  Age: 48 Year
  Sex: Female

DRUGS (2)
  1. DUPIXENT [Suspect]
     Active Substance: DUPILUMAB
     Dosage: 300 MG, QOW
     Dates: start: 2020, end: 20200424
  2. DUPIXENT [Suspect]
     Active Substance: DUPILUMAB
     Indication: ASTHMA
     Dosage: 600 MG, 1X
     Dates: start: 20200220, end: 20200220

REACTIONS (8)
  - Fatigue [Unknown]
  - Injection site reaction [Unknown]
  - Vision blurred [Unknown]
  - Arthritis [Unknown]
  - Myalgia [Unknown]
  - Arthralgia [Unknown]
  - Dyspnoea [Unknown]
  - Eye pain [Unknown]

NARRATIVE: CASE EVENT DATE: 2020
